FAERS Safety Report 17195310 (Version 2)
Quarter: 2024Q2

REPORT INFORMATION
  Report Type: Spontaneous
  Country: HK (occurrence: HK)
  Receive Date: 20191224
  Receipt Date: 20240424
  Transmission Date: 20240716
  Serious: Yes (Life-Threatening, Hospitalization, Other)
  Sender: FDA-Public Use
  Company Number: None

PATIENT
  Age: 65 Year
  Sex: Female

DRUGS (6)
  1. MYCOPHENOLATE MOFETIL [Interacting]
     Active Substance: MYCOPHENOLATE MOFETIL
     Indication: Immunosuppressant drug therapy
     Dosage: 180 MILLIGRAM, BID
     Route: 065
  2. MYCOPHENOLATE MOFETIL [Interacting]
     Active Substance: MYCOPHENOLATE MOFETIL
     Dosage: UNK (DOSE DECREASED)
     Route: 065
  3. TACROLIMUS [Interacting]
     Active Substance: TACROLIMUS
     Indication: Immunosuppressant drug therapy
     Dosage: 1 MILLIGRAM, BID
     Route: 048
  4. TACROLIMUS [Interacting]
     Active Substance: TACROLIMUS
     Dosage: UNK (DOSE REDUCED)
     Route: 065
  5. PREDNISOLONE [Interacting]
     Active Substance: PREDNISOLONE
     Indication: Immunosuppressant drug therapy
     Dosage: 10 MILLIGRAM, BID
     Route: 048
  6. PREDNISOLONE [Interacting]
     Active Substance: PREDNISOLONE
     Dosage: 5 MILLIGRAM, QD
     Route: 048

REACTIONS (10)
  - Pneumomediastinum [Recovering/Resolving]
  - Pneumothorax spontaneous [Recovering/Resolving]
  - Subcutaneous emphysema [Recovering/Resolving]
  - Pneumocystis jirovecii pneumonia [Recovering/Resolving]
  - Respiratory syncytial virus infection [Recovering/Resolving]
  - Cytomegalovirus infection [Recovering/Resolving]
  - Candida infection [Recovering/Resolving]
  - Enterovirus infection [Recovering/Resolving]
  - Rhinovirus infection [Recovering/Resolving]
  - Drug interaction [Unknown]
